FAERS Safety Report 6683074-7 (Version None)
Quarter: 2010Q2

REPORT INFORMATION
  Report Type: 
  Country: None (occurrence: None)
  Receive Date: 20100415
  Receipt Date: 20100409
  Transmission Date: 20101027
  Serious: Yes (Hospitalization, Other)
  Sender: FDA-Public Use
  Company Number: PHHY2010MX22571

PATIENT
  Age: 69 Year
  Sex: Female

DRUGS (1)
  1. FEMARA [Suspect]
     Dosage: 2.5 MG, QD 1 TABLET PER DAY
     Route: 048
     Dates: start: 20090801, end: 20091001

REACTIONS (6)
  - DYSPEPSIA [None]
  - GASTRIC LAVAGE [None]
  - INFLUENZA [None]
  - NAUSEA [None]
  - NERVOUS SYSTEM DISORDER [None]
  - SLEEP DISORDER [None]
